FAERS Safety Report 4819378-X (Version None)
Quarter: 2005Q4

REPORT INFORMATION
  Report Type: 
  Country: None (occurrence: None)
  Receive Date: 20051103
  Receipt Date: 20051026
  Transmission Date: 20060501
  Serious: Yes (Hospitalization)
  Sender: FDA-Public Use
  Company Number: US-GLAXOSMITHKLINE-A0579724A

PATIENT
  Age: 66 Year
  Sex: Female

DRUGS (7)
  1. NICODERM CQ [Suspect]
     Route: 062
     Dates: start: 20050901
  2. NICODERM CQ [Suspect]
     Route: 062
     Dates: start: 20000101
  3. NICORETTE [Suspect]
     Route: 002
     Dates: start: 20041201
  4. COMMIT [Suspect]
     Route: 002
     Dates: start: 20041201
  5. DESYREL [Concomitant]
     Indication: DEPRESSION
     Route: 048
  6. AMBIEN [Concomitant]
     Indication: SLEEP DISORDER
     Route: 048
  7. DILANTIN [Concomitant]
     Route: 048

REACTIONS (10)
  - ASTHENIA [None]
  - CEREBROVASCULAR ACCIDENT [None]
  - CHEST PAIN [None]
  - DIZZINESS [None]
  - FALL [None]
  - HEADACHE [None]
  - IMMOBILE [None]
  - NAUSEA [None]
  - PAIN IN EXTREMITY [None]
  - SHOULDER PAIN [None]
